FAERS Safety Report 4826256-9 (Version None)
Quarter: 2005Q4

REPORT INFORMATION
  Report Type: 
  Country: None (occurrence: None)
  Receive Date: 20051014
  Receipt Date: 20050727
  Transmission Date: 20060501
  Serious: No
  Sender: FDA-Public Use
  Company Number: 2005SP002089

PATIENT
  Age: 54 Year
  Sex: Female
  Weight: 106.5953 kg

DRUGS (7)
  1. LUNESTA [Suspect]
     Indication: HOT FLUSH
     Dosage: 3 MG;HS; ORAL
     Route: 048
     Dates: start: 20050726, end: 20050101
  2. LUNESTA [Suspect]
     Indication: INSOMNIA
     Dosage: 3 MG;HS; ORAL
     Route: 048
     Dates: start: 20050726, end: 20050101
  3. PAXIL [Concomitant]
  4. AMLODIPINE [Concomitant]
  5. PRILOSEC [Concomitant]
  6. WARFARIN SODIUM [Concomitant]
  7. AMBIEN [Concomitant]

REACTIONS (2)
  - DRY MOUTH [None]
  - DYSGEUSIA [None]
